FAERS Safety Report 9134850 (Version 1)
Quarter: 2013Q1

REPORT INFORMATION
  Report Type: Spontaneous
  Country: TR (occurrence: TR)
  Receive Date: 20130304
  Receipt Date: 20130304
  Transmission Date: 20140127
  Serious: Yes (Hospitalization)
  Sender: FDA-Public Use
  Company Number: TR-SANOFI-AVENTIS-2013SA019456

PATIENT
  Age: 31 Year
  Sex: Female

DRUGS (3)
  1. INSULIN GLARGINE [Suspect]
     Indication: DIABETES MELLITUS
     Route: 065
  2. INSULIN GLARGINE [Suspect]
     Indication: HYPERGLYCAEMIA
     Route: 065
  3. MULTIVITAMINS [Concomitant]

REACTIONS (2)
  - Weight decreased [Recovering/Resolving]
  - Hypoglycaemia [Recovered/Resolved]
